FAERS Safety Report 12606077 (Version 1)
Quarter: 2016Q3

REPORT INFORMATION
  Report Type: Spontaneous
  Country: US (occurrence: US)
  Receive Date: 20160729
  Receipt Date: 20160729
  Transmission Date: 20161109
  Serious: No
  Sender: FDA-Public Use
  Company Number: US-PFIZER INC-2016323565

PATIENT
  Sex: Female

DRUGS (1)
  1. IBRANCE [Suspect]
     Active Substance: PALBOCICLIB
     Dosage: 100 MG, CYCLIC, 1 CAPSULE PO DAILY FOR 21 DAYS AND THEN OFF FOR 7 DAYS
     Route: 048

REACTIONS (3)
  - Pain of skin [Unknown]
  - Alopecia [Not Recovered/Not Resolved]
  - Diarrhoea [Recovering/Resolving]
